FAERS Safety Report 5311859-8 (Version None)
Quarter: 2007Q2

REPORT INFORMATION
  Report Type: 
  Country: None (occurrence: None)
  Receive Date: 20070427
  Receipt Date: 20070427
  Transmission Date: 20071010
  Serious: Yes (Life-Threatening, Hospitalization)
  Sender: FDA-Public Use
  Company Number: None

PATIENT
  Age: 76 Year
  Sex: Female
  Weight: 80 kg

DRUGS (2)
  1. DASATINIB  -SPRYCEL-    BRISTOL-MYERS SQUIBB [Suspect]
     Indication: CHRONIC MYELOID LEUKAEMIA
     Dosage: 50MG  BID  PO
     Route: 048
     Dates: start: 20061006, end: 20061009
  2. HYDROXYUREA [Suspect]
     Indication: CHRONIC MYELOID LEUKAEMIA
     Dosage: 1000MG  BID  PO
     Route: 048
     Dates: start: 20061006, end: 20061009

REACTIONS (6)
  - ASTHENIA [None]
  - BLOOD COUNT [None]
  - DYSPNOEA EXERTIONAL [None]
  - FATIGUE [None]
  - PANCYTOPENIA [None]
  - WOUND [None]
